FAERS Safety Report 18616726 (Version 1)
Quarter: 2020Q4

REPORT INFORMATION
  Report Type: Spontaneous
  Country: US (occurrence: US)
  Receive Date: 20201215
  Receipt Date: 20201215
  Transmission Date: 20210114
  Serious: Yes (Other)
  Sender: FDA-Public Use
  Company Number: US-VIFOR (INTERNATIONAL) INC.-VIT-2020-11978

PATIENT
  Age: 40 Year
  Sex: Male
  Weight: 65.5 kg

DRUGS (2)
  1. MIRCERA [Suspect]
     Active Substance: METHOXY POLYETHYLENE GLYCOL-EPOETIN BETA
     Indication: NEPHROGENIC ANAEMIA
     Dosage: 75 X3
     Route: 040
     Dates: start: 20201016
  2. MIRCERA [Suspect]
     Active Substance: METHOXY POLYETHYLENE GLYCOL-EPOETIN BETA
     Dosage: 75MCG X 3, 4TH DOSE
     Route: 040
     Dates: start: 20201123, end: 20201123

REACTIONS (4)
  - Loss of consciousness [Recovering/Resolving]
  - Seizure like phenomena [Recovering/Resolving]
  - Blood pressure increased [Recovering/Resolving]
  - Drug hypersensitivity [Recovering/Resolving]

NARRATIVE: CASE EVENT DATE: 20201123
